FAERS Safety Report 7470851-8 (Version None)
Quarter: 2011Q2

REPORT INFORMATION
  Report Type: 
  Country: None (occurrence: None)
  Receive Date: 20110510
  Receipt Date: 20110502
  Transmission Date: 20111010
  Serious: Yes (Other)
  Sender: FDA-Public Use
  Company Number: US-JNJFOC-20110501425

PATIENT
  Age: 52 Year
  Sex: Female
  Weight: 73.03 kg

DRUGS (11)
  1. EXTRA STRENGTH TYLENOL [Suspect]
     Route: 048
  2. DEPAKOTE [Concomitant]
     Indication: CONVULSION
     Route: 048
  3. HYDROCHLOROTHIAZIDE [Concomitant]
     Indication: HYPERTENSION
     Route: 048
  4. EXTRA STRENGTH TYLENOL [Suspect]
     Indication: ARTHRITIS
     Route: 048
  5. LOVASTATIN [Concomitant]
     Indication: BLOOD CHOLESTEROL ABNORMAL
     Route: 048
  6. FLUVOXAMINE [Concomitant]
     Indication: PSYCHOTIC DISORDER
     Route: 048
  7. SYNTHROID [Concomitant]
     Indication: THYROID DISORDER
     Route: 048
  8. METFORMIN HCL [Concomitant]
     Indication: DIABETES MELLITUS
     Route: 048
  9. NORVASC [Concomitant]
     Indication: HYPERTENSION
     Route: 048
  10. RESTORIL [Concomitant]
     Indication: DEPRESSION
     Route: 048
  11. ABILIFY [Concomitant]
     Indication: PSYCHOTIC DISORDER
     Route: 048

REACTIONS (1)
  - CONVULSION [None]
